FAERS Safety Report 6781028-3 (Version None)
Quarter: 2010Q2

REPORT INFORMATION
  Report Type: 
  Country: None (occurrence: None)
  Receive Date: 20100621
  Receipt Date: 20100617
  Transmission Date: 20101027
  Serious: Yes (Hospitalization)
  Sender: FDA-Public Use
  Company Number: FR-SANOFI-AVENTIS-200913447FR

PATIENT
  Age: 16 Year
  Sex: Female

DRUGS (8)
  1. ISONIAZID/PYRAZINAMIDE/RIFAMPICIN [Suspect]
     Indication: PULMONARY TUBERCULOSIS
     Dosage: DOSE:5 UNIT(S)
     Route: 048
     Dates: start: 20090609, end: 20090718
  2. ALLOPURINOL [Suspect]
     Route: 048
     Dates: start: 20090618, end: 20090718
  3. PIRILENE [Concomitant]
     Indication: PULMONARY TUBERCULOSIS
     Dosage: DOSE UNIT: 500 MG
     Route: 048
     Dates: start: 20090603, end: 20090608
  4. RIFADIN [Concomitant]
     Indication: PULMONARY TUBERCULOSIS
     Route: 048
     Dates: start: 20090603, end: 20090608
  5. RIMIFON [Concomitant]
     Indication: PULMONARY TUBERCULOSIS
     Route: 048
     Dates: start: 20090603, end: 20090608
  6. CLAMOXYL RC [Concomitant]
     Indication: DRUG USE FOR UNKNOWN INDICATION
     Dates: start: 20090711, end: 20090718
  7. FUMAFER [Concomitant]
     Indication: DRUG USE FOR UNKNOWN INDICATION
     Route: 048
     Dates: end: 20090718
  8. AMOXICILLIN SODIUM/CLAVULANATE POTASSIUM [Concomitant]
     Indication: DRUG USE FOR UNKNOWN INDICATION
     Dates: start: 20090711, end: 20090718

REACTIONS (7)
  - CYTOLYTIC HEPATITIS [None]
  - DRUG RASH WITH EOSINOPHILIA AND SYSTEMIC SYMPTOMS [None]
  - EOSINOPHILIA [None]
  - LYMPHADENOPATHY [None]
  - PYREXIA [None]
  - RASH MACULO-PAPULAR [None]
  - SPLENOMEGALY [None]
